FAERS Safety Report 9468535 (Version 1)
Quarter: 2013Q3

REPORT INFORMATION
  Report Type: Report from Study
  Country: US (occurrence: US)
  Receive Date: 20130821
  Receipt Date: 20130821
  Transmission Date: 20140515
  Serious: Yes (Other)
  Sender: FDA-Public Use
  Company Number: US-ROCHE-1263558

PATIENT
  Sex: Female

DRUGS (10)
  1. AVASTIN [Suspect]
     Indication: PRODUCT USED FOR UNKNOWN INDICATION
     Route: 065
  2. LUCENTIS [Suspect]
     Indication: EYE DISORDER
     Dosage: OS
     Route: 065
     Dates: start: 20130626, end: 20130626
  3. LUCENTIS [Suspect]
     Indication: MACULAR DEGENERATION
  4. LUCENTIS [Suspect]
     Indication: RETINOPATHY HYPERTENSIVE
  5. CYMBALTA [Concomitant]
  6. DALIRESP [Concomitant]
  7. METFORMIN [Concomitant]
     Route: 065
  8. GLUCOTROL [Concomitant]
     Route: 065
  9. NEURONTIN (UNITED STATES) [Concomitant]
     Route: 065
  10. METHADONE [Concomitant]
     Route: 065

REACTIONS (6)
  - Eye discharge [Unknown]
  - Eye pain [Unknown]
  - Photosensitivity reaction [Unknown]
  - Depression [Unknown]
  - Choroidal neovascularisation [Unknown]
  - Retinal haemorrhage [Unknown]
